FAERS Safety Report 21803887 (Version 1)
Quarter: 2023Q1

REPORT INFORMATION
  Report Type: Report from Study
  Country: US (occurrence: US)
  Receive Date: 20230102
  Receipt Date: 20230102
  Transmission Date: 20230418
  Serious: No
  Sender: FDA-Public Use
  Company Number: US-ABBVIE-4251457

PATIENT
  Sex: Female

DRUGS (2)
  1. HUMIRA [Suspect]
     Active Substance: ADALIMUMAB
     Indication: Rheumatoid arthritis
     Dosage: CF
     Route: 058
     Dates: start: 20220309, end: 202209
  2. HUMIRA [Suspect]
     Active Substance: ADALIMUMAB
     Dosage: CF
     Route: 058
     Dates: start: 202209

REACTIONS (6)
  - Urticaria [Unknown]
  - Incorrect dose administered [Unknown]
  - Inflammation [Recovering/Resolving]
  - Arthralgia [Unknown]
  - Joint stiffness [Unknown]
  - Injection site haemorrhage [Unknown]
